FAERS Safety Report 7663103-4 (Version None)
Quarter: 2011Q3

REPORT INFORMATION
  Report Type: 
  Country: None (occurrence: None)
  Receive Date: 20110805
  Receipt Date: 20100915
  Transmission Date: 20111222
  Serious: No
  Sender: FDA-Public Use
  Company Number: US-ABBOTT-10P-163-0672096-00

PATIENT
  Sex: Female
  Weight: 83.99 kg

DRUGS (5)
  1. DIOVAN [Concomitant]
     Indication: HYPERTENSION
  2. NIASPAN [Suspect]
     Indication: BLOOD TRIGLYCERIDES INCREASED
     Dates: start: 20100801, end: 20100801
  3. AMLODIPINE [Concomitant]
     Indication: HYPERTENSION
  4. VICODIN [Concomitant]
     Indication: BACK PAIN
  5. PREMARIN [Concomitant]
     Indication: HORMONE REPLACEMENT THERAPY

REACTIONS (3)
  - HOT FLUSH [None]
  - FLUSHING [None]
  - PRURITUS [None]
